FAERS Safety Report 11220552 (Version 1)
Quarter: 2015Q2

REPORT INFORMATION
  Report Type: Spontaneous
  Country: GB (occurrence: GB)
  Receive Date: 20150626
  Receipt Date: 20150626
  Transmission Date: 20150821
  Serious: Yes (Hospitalization, Other)
  Sender: FDA-Public Use
  Company Number: GB-ABBVIE-15K-167-1412980-00

PATIENT
  Sex: Male

DRUGS (19)
  1. AZATHIOPRINE. [Suspect]
     Active Substance: AZATHIOPRINE
     Indication: RHEUMATOID ARTHRITIS
     Dosage: LOW DOSE
     Route: 065
     Dates: start: 201103
  2. AZATHIOPRINE. [Suspect]
     Active Substance: AZATHIOPRINE
     Dosage: DOSE INCREASED
     Route: 065
     Dates: start: 201107
  3. SALAZOPYRINE [Concomitant]
     Active Substance: SULFASALAZINE
     Dates: start: 2006, end: 2009
  4. FENACTOL [Concomitant]
     Indication: PRODUCT USED FOR UNKNOWN INDICATION
     Dates: start: 2006, end: 2009
  5. METHOTREXATE [Concomitant]
     Active Substance: METHOTREXATE
     Indication: PRODUCT USED FOR UNKNOWN INDICATION
     Dates: start: 2004
  6. HUMIRA [Suspect]
     Active Substance: ADALIMUMAB
     Indication: PAIN
     Route: 065
     Dates: start: 200906
  7. HUMIRA [Suspect]
     Active Substance: ADALIMUMAB
     Route: 065
     Dates: start: 20130516
  8. SALAZOPYRINE [Concomitant]
     Active Substance: SULFASALAZINE
     Dates: start: 200906
  9. METHOTREXATE [Concomitant]
     Active Substance: METHOTREXATE
     Dates: start: 200906
  10. PREDNISOLONE. [Concomitant]
     Active Substance: PREDNISOLONE
     Dosage: LOW DOSE
     Dates: start: 201103
  11. MELOXICAM. [Concomitant]
     Active Substance: MELOXICAM
     Indication: PRODUCT USED FOR UNKNOWN INDICATION
     Dates: start: 200906
  12. ZYDOL [Concomitant]
     Active Substance: TRAMADOL HYDROCHLORIDE
     Indication: PRODUCT USED FOR UNKNOWN INDICATION
  13. FOLIC ACID. [Concomitant]
     Active Substance: FOLIC ACID
     Indication: PRODUCT USED FOR UNKNOWN INDICATION
     Dates: start: 200906
  14. HUMIRA [Suspect]
     Active Substance: ADALIMUMAB
     Route: 065
     Dates: start: 201208
  15. AZATHIOPRINE. [Suspect]
     Active Substance: AZATHIOPRINE
     Indication: CROHN^S DISEASE
     Route: 065
  16. SALAZOPYRINE [Concomitant]
     Active Substance: SULFASALAZINE
     Indication: PRODUCT USED FOR UNKNOWN INDICATION
     Dates: start: 2000
  17. TRAMADOL [Concomitant]
     Active Substance: TRAMADOL
     Indication: PAIN
  18. PREDNISOLONE. [Concomitant]
     Active Substance: PREDNISOLONE
     Indication: PRODUCT USED FOR UNKNOWN INDICATION
     Dosage: EVERY 3-4 WEEKS
     Dates: start: 2006, end: 200906
  19. HUMIRA [Suspect]
     Active Substance: ADALIMUMAB
     Route: 065

REACTIONS (13)
  - Speech disorder [Unknown]
  - Abdominal pain upper [Unknown]
  - Pneumonia [Unknown]
  - Cerebrovascular accident [Recovered/Resolved with Sequelae]
  - Immunodeficiency [Unknown]
  - Osteoporosis [Unknown]
  - General physical health deterioration [Unknown]
  - Crohn^s disease [Unknown]
  - Liver disorder [Unknown]
  - Rheumatoid arthritis [Unknown]
  - Pain [Recovering/Resolving]
  - Colon neoplasm [Unknown]
  - Pneumonia legionella [Unknown]

NARRATIVE: CASE EVENT DATE: 2010
